FAERS Safety Report 23333236 (Version 1)
Quarter: 2023Q4

REPORT INFORMATION
  Report Type: Spontaneous
  Country: US (occurrence: US)
  Receive Date: 20231222
  Receipt Date: 20231222
  Transmission Date: 20240110
  Serious: Yes (Death)
  Sender: FDA-Public Use
  Company Number: US-Covis Pharma GmbH-2023COV01982

PATIENT
  Age: 66 Year
  Sex: Female

DRUGS (8)
  1. ALTOPREV [Suspect]
     Active Substance: LOVASTATIN
     Indication: Product used for unknown indication
     Route: 048
  2. METFORMIN [Suspect]
     Active Substance: METFORMIN HYDROCHLORIDE
  3. ALPRAZOLAM [Suspect]
     Active Substance: ALPRAZOLAM
  4. LEVETIRACETAM [Suspect]
     Active Substance: LEVETIRACETAM
  5. LISINOPRIL [Suspect]
     Active Substance: LISINOPRIL
  6. QUETIAPINE [Suspect]
     Active Substance: QUETIAPINE
  7. PAROXETINE [Suspect]
     Active Substance: PAROXETINE
  8. OLANZAPINE [Suspect]
     Active Substance: OLANZAPINE

REACTIONS (1)
  - Death [Fatal]
